FAERS Safety Report 5521038-7 (Version None)
Quarter: 2007Q4

REPORT INFORMATION
  Report Type: 
  Country: None (occurrence: None)
  Receive Date: 20071119
  Receipt Date: 20071109
  Transmission Date: 20080405
  Serious: Yes (Hospitalization)
  Sender: FDA-Public Use
  Company Number: US-JNJFOC-20071103714

PATIENT
  Sex: Male
  Weight: 95.26 kg

DRUGS (2)
  1. REMICADE [Suspect]
     Indication: ANKYLOSING SPONDYLITIS
     Route: 042
  2. PIROXICAM [Concomitant]

REACTIONS (2)
  - MYELITIS TRANSVERSE [None]
  - NEUROGENIC BLADDER [None]
